FAERS Safety Report 6309795-3 (Version None)
Quarter: 2009Q3

REPORT INFORMATION
  Report Type: 
  Country: None (occurrence: None)
  Receive Date: 20090814
  Receipt Date: 20090804
  Transmission Date: 20100115
  Serious: Yes (Hospitalization)
  Sender: FDA-Public Use
  Company Number: SE-ELI_LILLY_AND_COMPANY-SE200908000777

PATIENT
  Age: 30 Year
  Sex: Female

DRUGS (6)
  1. CYMBALTA [Suspect]
     Dosage: 30 MG, DAILY (1/D)
     Route: 048
     Dates: start: 20070212, end: 20080801
  2. CYMBALTA [Suspect]
     Dosage: 60 MG, DAILY (1/D)
     Route: 048
     Dates: start: 20080801, end: 20090507
  3. CYMBALTA [Suspect]
     Dosage: 60 MG, EVERY OTHER DAY
     Route: 048
     Dates: start: 20090507, end: 20090517
  4. LYRICA [Concomitant]
     Dosage: 75 MG, DAILY (1/D)
     Route: 048
     Dates: start: 20081023, end: 20090517
  5. ATARAX [Concomitant]
     Dosage: 25 MG, UNKNOWN
     Route: 065
  6. DIKLOFENAK [Concomitant]
     Dosage: 50 MG, UNKNOWN
     Route: 065

REACTIONS (3)
  - CARDIAC FAILURE [None]
  - CONGESTIVE CARDIOMYOPATHY [None]
  - WEIGHT INCREASED [None]
